FAERS Safety Report 18659092 (Version 1)
Quarter: 2020Q4

REPORT INFORMATION
  Report Type: Spontaneous
  Country: US (occurrence: US)
  Receive Date: 20201223
  Receipt Date: 20201223
  Transmission Date: 20210114
  Serious: Yes (Death, Other)
  Sender: FDA-Public Use
  Company Number: US-PURDUE-USA-2020-0192335

PATIENT
  Sex: Male

DRUGS (4)
  1. HYDROCODONE BITARTRATE (SIMILAR TO NDA 206627) [Suspect]
     Active Substance: HYDROCODONE BITARTRATE
     Indication: SPINAL CORD INJURY
     Dosage: 10/650 (NO UNITS), TID
     Route: 048
     Dates: start: 1995, end: 2011
  2. OXYCONTIN [Suspect]
     Active Substance: OXYCODONE HYDROCHLORIDE
     Indication: SPINAL CORD INJURY
     Dosage: 40 MG, TID
     Route: 048
     Dates: start: 1995, end: 2011
  3. MS CONTIN [Suspect]
     Active Substance: MORPHINE SULFATE
     Indication: SPINAL CORD INJURY
     Dosage: 80 MG, TID
     Route: 048
     Dates: start: 1995, end: 2011
  4. FENTANYL. [Suspect]
     Active Substance: FENTANYL
     Indication: SPINAL CORD INJURY
     Dosage: UNK UNK, TID
     Route: 065
     Dates: start: 1995, end: 2011

REACTIONS (3)
  - Overdose [Unknown]
  - Death [Fatal]
  - Drug dependence [Unknown]

NARRATIVE: CASE EVENT DATE: 20110613
